FAERS Safety Report 22139128 (Version 1)
Quarter: 2023Q1

REPORT INFORMATION
  Report Type: Spontaneous
  Country: US (occurrence: US)
  Receive Date: 20230327
  Receipt Date: 20230327
  Transmission Date: 20230417
  Serious: No
  Sender: FDA-Public Use
  Company Number: US-BIOGEN-2020BI00879837

PATIENT
  Age: 60 Year
  Sex: Female

DRUGS (27)
  1. TECFIDERA [Suspect]
     Active Substance: DIMETHYL FUMARATE
     Indication: Multiple sclerosis
     Dosage: STARTING DOSE
     Route: 050
  2. TECFIDERA [Suspect]
     Active Substance: DIMETHYL FUMARATE
     Route: 050
     Dates: start: 20150430
  3. TECFIDERA [Suspect]
     Active Substance: DIMETHYL FUMARATE
     Route: 050
     Dates: start: 20150429
  4. TECFIDERA [Suspect]
     Active Substance: DIMETHYL FUMARATE
     Dosage: MAINTENANCE DOSE
     Route: 050
     Dates: start: 20170726, end: 20221104
  5. ADVIL [Concomitant]
     Active Substance: IBUPROFEN
     Route: 050
  6. ALTACE [Concomitant]
     Active Substance: RAMIPRIL
     Route: 050
  7. ASPIRIN [Concomitant]
     Active Substance: ASPIRIN
     Route: 050
  8. VITAMIN B12 [Concomitant]
     Active Substance: CYANOCOBALAMIN
     Route: 050
  9. CYMBALTA [Concomitant]
     Active Substance: DULOXETINE HYDROCHLORIDE
     Route: 050
  10. COENZYME Q10 [Concomitant]
     Active Substance: DIETARY SUPPLEMENT\UBIDECARENONE
     Route: 050
  11. GABAPENTIN [Concomitant]
     Active Substance: GABAPENTIN
     Route: 050
  12. GLUCOTROL [Concomitant]
     Active Substance: GLIPIZIDE
     Route: 050
  13. IBUPROFEN [Concomitant]
     Active Substance: IBUPROFEN
     Route: 050
  14. LOVASTATIN [Concomitant]
     Active Substance: LOVASTATIN
     Route: 050
  15. METFORMIN [Concomitant]
     Active Substance: METFORMIN HYDROCHLORIDE
     Route: 050
  16. ONGLYZA [Concomitant]
     Active Substance: SAXAGLIPTIN HYDROCHLORIDE
     Route: 050
  17. PRED FORTE [Concomitant]
     Active Substance: PREDNISOLONE ACETATE
     Route: 050
  18. PROAIR HFA [Concomitant]
     Active Substance: ALBUTEROL SULFATE
     Route: 050
  19. RAMIPRIL [Concomitant]
     Active Substance: RAMIPRIL
     Route: 050
  20. SINGULAIR [Concomitant]
     Active Substance: MONTELUKAST SODIUM
     Route: 050
  21. TRADJENTA [Concomitant]
     Active Substance: LINAGLIPTIN
     Route: 050
  22. ST. JOHN^S WORT [Concomitant]
     Active Substance: ST. JOHN^S WORT
     Route: 050
  23. VITAMIN D3 [Concomitant]
     Active Substance: CHOLECALCIFEROL
     Route: 050
  24. DULOXETINE [Concomitant]
     Active Substance: DULOXETINE
     Route: 050
  25. AMANTADINE [Concomitant]
     Active Substance: AMANTADINE
     Route: 050
  26. TRULICITY [Concomitant]
     Active Substance: DULAGLUTIDE
     Indication: Product used for unknown indication
     Route: 050
  27. TRELEGY ELLIPTA [Concomitant]
     Active Substance: FLUTICASONE FUROATE\UMECLIDINIUM BROMIDE\VILANTEROL TRIFENATATE
     Route: 050

REACTIONS (6)
  - Product dose omission in error [Not Recovered/Not Resolved]
  - Product dose omission issue [Unknown]
  - Joint stiffness [Not Recovered/Not Resolved]
  - Fatigue [Not Recovered/Not Resolved]
  - Dizziness [Not Recovered/Not Resolved]
  - Pain [Not Recovered/Not Resolved]

NARRATIVE: CASE EVENT DATE: 20210601
